FAERS Safety Report 6427985-6 (Version None)
Quarter: 2009Q4

REPORT INFORMATION
  Report Type: 
  Country: None (occurrence: None)
  Receive Date: 20091105
  Receipt Date: 20091026
  Transmission Date: 20100525
  Serious: Yes (Hospitalization)
  Sender: FDA-Public Use
  Company Number: NL-ROCHE-633649

PATIENT
  Sex: Male
  Weight: 73 kg

DRUGS (6)
  1. CAPECITABINE [Interacting]
     Dosage: 2 WEEKS ON, 1 WEEK OFF
     Route: 048
     Dates: start: 20090422
  2. CISPLATIN [Interacting]
     Route: 042
     Dates: start: 20090422
  3. EPIRUBICIN [Suspect]
     Route: 042
     Dates: start: 20090422, end: 20090610
  4. PANTOPRAZOLE [Concomitant]
     Route: 048
  5. LACTULOSE [Concomitant]
     Route: 048
  6. FENTANYL-100 [Concomitant]
     Dosage: ADDITIONAL ROUTE: TOPICAL
     Route: 062

REACTIONS (9)
  - ABDOMINAL PAIN [None]
  - CHILLS [None]
  - CLOSTRIDIAL INFECTION [None]
  - DIARRHOEA [None]
  - DRUG INTERACTION [None]
  - FEBRILE NEUTROPENIA [None]
  - GASTROINTESTINAL PERFORATION [None]
  - PERITONEAL DISORDER [None]
  - PYREXIA [None]
